FAERS Safety Report 6781141-0 (Version None)
Quarter: 2010Q2

REPORT INFORMATION
  Report Type: 
  Country: None (occurrence: None)
  Receive Date: 20100615
  Receipt Date: 20100531
  Transmission Date: 20101027
  Serious: Yes (Congenital Anomaly, Other)
  Sender: FDA-Public Use
  Company Number: 150-20484-10011871

PATIENT
  Sex: Female
  Weight: 2.62 kg

DRUGS (4)
  1. INNOHEP [Suspect]
     Indication: DRUG EXPOSURE DURING PREGNANCY
     Dosage: TRANSPLACENTAL
     Dates: start: 20060701, end: 20070327
  2. MEPERIDINE HYDROCHLORIDE [Concomitant]
  3. BRICANYL [Concomitant]
  4. SYNTOCINON [Concomitant]

REACTIONS (3)
  - MATERNAL DRUGS AFFECTING FOETUS [None]
  - PREMATURE BABY [None]
  - TRISOMY 21 [None]
